FAERS Safety Report 7310707-4 (Version None)
Quarter: 2011Q1

REPORT INFORMATION
  Report Type: 
  Country: None (occurrence: None)
  Receive Date: 20110224
  Receipt Date: 20100820
  Transmission Date: 20110831
  Serious: No
  Sender: FDA-Public Use
  Company Number: US-BRISTOL-MYERS SQUIBB COMPANY-15250681

PATIENT
  Age: 22 Year
  Sex: Female

DRUGS (1)
  1. LYSODREN [Suspect]

REACTIONS (2)
  - ACCIDENTAL EXPOSURE [None]
  - PREGNANCY [None]
